FAERS Safety Report 8202792-2 (Version None)
Quarter: 2012Q1

REPORT INFORMATION
  Report Type: 
  Country: None (occurrence: None)
  Receive Date: 20120312
  Receipt Date: 20120312
  Transmission Date: 20120608
  Serious: Yes (Other)
  Sender: FDA-Public Use
  Company Number: None

PATIENT
  Age: 77 Year
  Sex: Female
  Weight: 56.699 kg

DRUGS (2)
  1. ATOTVASTATIN [Concomitant]
     Dosage: 20ML
     Route: 048
     Dates: start: 20120307, end: 20120308
  2. ATORVASTATIN [Suspect]
     Indication: BLOOD CHOLESTEROL INCREASED
     Dosage: 20ML
     Route: 048
     Dates: start: 20120307, end: 20120308

REACTIONS (2)
  - PRODUCT SUBSTITUTION ISSUE [None]
  - SWOLLEN TONGUE [None]
